FAERS Safety Report 7359176-9 (Version None)
Quarter: 2011Q1

REPORT INFORMATION
  Report Type: 
  Country: None (occurrence: None)
  Receive Date: 20110317
  Receipt Date: 20110308
  Transmission Date: 20110831
  Serious: Yes (Other)
  Sender: FDA-Public Use
  Company Number: US-ASTRAZENECA-2010SE56427

PATIENT
  Age: 84 Year
  Sex: Female

DRUGS (4)
  1. NEXIUM [Suspect]
     Route: 048
  2. DIOVAN [Concomitant]
  3. PLAVIX [Concomitant]
  4. COREG [Concomitant]

REACTIONS (3)
  - OEDEMA PERIPHERAL [None]
  - HEART VALVE INCOMPETENCE [None]
  - MALAISE [None]
